FAERS Safety Report 11487851 (Version 1)
Quarter: 2015Q3

REPORT INFORMATION
  Report Type: Spontaneous
  Country: US (occurrence: US)
  Receive Date: 20150909
  Receipt Date: 20150909
  Transmission Date: 20151125
  Serious: No
  Sender: FDA-Public Use
  Company Number: US-JAZZ-2015-US-000493

PATIENT
  Age: 43 Year
  Sex: Female

DRUGS (4)
  1. XYREM [Suspect]
     Active Substance: SODIUM OXYBATE
     Dosage: 3.75 G, BID
     Route: 048
     Dates: start: 2008, end: 2008
  2. XYREM [Suspect]
     Active Substance: SODIUM OXYBATE
     Dosage: 3 G, BID
     Route: 048
     Dates: start: 200806, end: 2008
  3. XYREM [Suspect]
     Active Substance: SODIUM OXYBATE
     Indication: SLEEP PHASE RHYTHM DISTURBANCE
     Dosage: 2 G, BID
     Route: 048
     Dates: start: 200701, end: 2007
  4. XYREM [Suspect]
     Active Substance: SODIUM OXYBATE
     Dosage: 4.5 G, BID
     Route: 048
     Dates: start: 200906, end: 20150115

REACTIONS (2)
  - Product use issue [Unknown]
  - Apicectomy [Not Recovered/Not Resolved]

NARRATIVE: CASE EVENT DATE: 20150116
